FAERS Safety Report 19957925 (Version 1)
Quarter: 2021Q4

REPORT INFORMATION
  Report Type: Report from Study
  Country: US (occurrence: US)
  Receive Date: 20211015
  Receipt Date: 20211015
  Transmission Date: 20220303
  Serious: Yes (Death)
  Sender: FDA-Public Use
  Company Number: US-INSMED, INC.-2021-08956-US

PATIENT
  Age: 69 Year
  Sex: Male

DRUGS (3)
  1. ARIKAYCE [Suspect]
     Active Substance: AMIKACIN
     Indication: Mycobacterium avium complex infection
     Dosage: 590 MILLIGRAM, QD
     Route: 055
     Dates: start: 202107
  2. ALBUTEROL [Concomitant]
     Active Substance: ALBUTEROL
  3. OXYGEN [Concomitant]
     Active Substance: OXYGEN

REACTIONS (11)
  - Death [Fatal]
  - Secretion discharge [Not Recovered/Not Resolved]
  - Increased viscosity of bronchial secretion [Not Recovered/Not Resolved]
  - Injury associated with device [Unknown]
  - Tooth fracture [Recovered/Resolved]
  - Tremor [Unknown]
  - Productive cough [Recovered/Resolved]
  - Productive cough [Unknown]
  - Sinus headache [Not Recovered/Not Resolved]
  - Diarrhoea [Unknown]
  - Dyspnoea [Not Recovered/Not Resolved]

NARRATIVE: CASE EVENT DATE: 20210101
